FAERS Safety Report 23854299 (Version 5)
Quarter: 2024Q2

REPORT INFORMATION
  Report Type: Spontaneous
  Country: US (occurrence: US)
  Receive Date: 20240514
  Receipt Date: 20240612
  Transmission Date: 20240716
  Serious: Yes (Hospitalization, Other)
  Sender: FDA-Public Use
  Company Number: US-002147023-NVSC2024US100110

PATIENT
  Age: 0 Year
  Sex: Male
  Weight: 6.6 kg

DRUGS (1)
  1. ZOLGENSMA [Suspect]
     Active Substance: ONASEMNOGENE ABEPARVOVEC-XIOI
     Indication: Spinal muscular atrophy
     Dosage: 35.8 ML, ONCE/SINGLE
     Route: 042
     Dates: start: 20240507

REACTIONS (7)
  - Infusion site extravasation [Recovering/Resolving]
  - Injection site swelling [Recovering/Resolving]
  - Injection site rash [Recovering/Resolving]
  - Injection site hypersensitivity [Recovering/Resolving]
  - Injection site discolouration [Recovering/Resolving]
  - Hypersensitivity [Unknown]
  - Rash [Recovered/Resolved]

NARRATIVE: CASE EVENT DATE: 20240507
